FAERS Safety Report 6108229-1 (Version None)
Quarter: 2009Q1

REPORT INFORMATION
  Report Type: 
  Country: None (occurrence: None)
  Receive Date: 20090304
  Receipt Date: 20080604
  Transmission Date: 20090719
  Serious: Yes (Death)
  Sender: FDA-Public Use
  Company Number: US-001148

PATIENT
  Age: 76 Year
  Sex: Male

DRUGS (1)
  1. ISOVUE-300 [Suspect]
     Indication: UROGRAM
     Dosage: 40ML QD INTRAVENOUS (NOT OTHERWISE SPECIFIED)
     Route: 042
     Dates: start: 20080507, end: 20080507

REACTIONS (3)
  - CYANOSIS [None]
  - DYSPNOEA [None]
  - FOAMING AT MOUTH [None]
